FAERS Safety Report 6534737-5 (Version None)
Quarter: 2010Q1

REPORT INFORMATION
  Report Type: 
  Country: None (occurrence: None)
  Receive Date: 20100112
  Receipt Date: 20091231
  Transmission Date: 20100710
  Serious: Yes (Other)
  Sender: FDA-Public Use
  Company Number: US-PFIZER INC-2010002102

PATIENT
  Age: 40 Year
  Sex: Female

DRUGS (1)
  1. ZOLOFT [Suspect]

REACTIONS (5)
  - FEELING ABNORMAL [None]
  - MULTIPLE SCLEROSIS [None]
  - SOCIAL AVOIDANT BEHAVIOUR [None]
  - SPINAL COLUMN STENOSIS [None]
  - WEIGHT INCREASED [None]
